FAERS Safety Report 6430904-X (Version None)
Quarter: 2009Q4

REPORT INFORMATION
  Report Type: 
  Country: None (occurrence: None)
  Receive Date: 20091106
  Receipt Date: 20091029
  Transmission Date: 20100525
  Serious: Yes (Hospitalization)
  Sender: FDA-Public Use
  Company Number: IT-WYE-H11992009

PATIENT
  Sex: Female

DRUGS (1)
  1. CORDARONE [Suspect]
     Route: 048
     Dates: start: 20090906, end: 20090906

REACTIONS (2)
  - PHOTOSENSITIVITY REACTION [None]
  - SKIN EXFOLIATION [None]
